FAERS Safety Report 25250439 (Version 1)
Quarter: 2025Q2

REPORT INFORMATION
  Report Type: Spontaneous
  Country: US (occurrence: US)
  Receive Date: 20250429
  Receipt Date: 20250429
  Transmission Date: 20250716
  Serious: No
  Sender: ELI LILLY AND COMPANY
  Company Number: US-ELI_LILLY_AND_COMPANY-US202504021607

PATIENT
  Age: 56 Year
  Sex: Female

DRUGS (5)
  1. ZEPBOUND [Suspect]
     Active Substance: TIRZEPATIDE
     Indication: Cough
     Route: 065
     Dates: start: 20250309, end: 20250325
  2. ZEPBOUND [Suspect]
     Active Substance: TIRZEPATIDE
     Indication: Cough
     Route: 065
     Dates: start: 20250309, end: 20250325
  3. ZEPBOUND [Suspect]
     Active Substance: TIRZEPATIDE
     Indication: Cough
     Route: 065
     Dates: start: 20250309, end: 20250325
  4. ZEPBOUND [Suspect]
     Active Substance: TIRZEPATIDE
     Indication: Cough
     Route: 065
     Dates: start: 20250309, end: 20250325
  5. GABAPENTIN [Concomitant]
     Active Substance: GABAPENTIN
     Indication: Neurogenic cough
     Dates: start: 20240118

REACTIONS (2)
  - Neurogenic cough [Recovered/Resolved]
  - Off label use [Unknown]

NARRATIVE: CASE EVENT DATE: 20250309
